FAERS Safety Report 23861107 (Version 1)
Quarter: 2024Q2

REPORT INFORMATION
  Report Type: Spontaneous
  Country: US (occurrence: US)
  Receive Date: 20240516
  Receipt Date: 20240516
  Transmission Date: 20240716
  Serious: No
  Sender: FDA-Public Use
  Company Number: US-UCBSA-2023057729

PATIENT
  Sex: Male

DRUGS (3)
  1. NEUPRO [Suspect]
     Active Substance: ROTIGOTINE
     Indication: Off label use
     Dosage: UNK
     Route: 062
  2. NEUPRO [Suspect]
     Active Substance: ROTIGOTINE
     Indication: Spinal cord injury
  3. NEUPRO [Suspect]
     Active Substance: ROTIGOTINE
     Indication: Off label use

REACTIONS (3)
  - Off label use [Unknown]
  - Insurance issue [Unknown]
  - Inability to afford medication [Unknown]
